FAERS Safety Report 26040370 (Version 3)
Quarter: 2025Q4

REPORT INFORMATION
  Report Type: Spontaneous
  Country: US (occurrence: US)
  Receive Date: 20251113
  Receipt Date: 20251224
  Transmission Date: 20260117
  Serious: No
  Sender: GLAXOSMITHKLINE
  Company Number: US-GSKCCFUS-Case-02422297_AE-126362

PATIENT
  Sex: Female

DRUGS (2)
  1. ARNUITY ELLIPTA [Suspect]
     Active Substance: FLUTICASONE FUROATE
     Indication: Asthma
  2. ARNUITY ELLIPTA [Suspect]
     Active Substance: FLUTICASONE FUROATE
     Dosage: UNK

REACTIONS (7)
  - Oxygen saturation decreased [Unknown]
  - Aphonia [Unknown]
  - Dyspnoea [Unknown]
  - Asthma [Unknown]
  - Product complaint [Unknown]
  - Drug ineffective [Unknown]
  - Malaise [Unknown]
